FAERS Safety Report 24215957 (Version 1)
Quarter: 2024Q3

REPORT INFORMATION
  Report Type: Spontaneous
  Country: US (occurrence: None)
  Receive Date: 20240816
  Receipt Date: 20240816
  Transmission Date: 20241016
  Serious: No
  Sender: OREXO
  Company Number: US-Orexo US, Inc.-ORE202406-000030

PATIENT
  Age: 75 Year
  Sex: Male
  Weight: 62.59 kg

DRUGS (1)
  1. ZUBSOLV [Suspect]
     Active Substance: BUPRENORPHINE HYDROCHLORIDE\NALOXONE HYDROCHLORIDE
     Indication: Neuralgia
     Dosage: UNKNOWN (ONE TABLET)
     Route: 060

REACTIONS (3)
  - Wrong technique in product usage process [Unknown]
  - Product physical issue [Unknown]
  - Product use in unapproved indication [Unknown]

NARRATIVE: CASE EVENT DATE: 20240626
